FAERS Safety Report 22614694 (Version 1)
Quarter: 2023Q2

REPORT INFORMATION
  Report Type: Spontaneous
  Country: BR (occurrence: BR)
  Receive Date: 20230619
  Receipt Date: 20230619
  Transmission Date: 20230721
  Serious: Yes (Other)
  Sender: FDA-Public Use
  Company Number: BR-SUN PHARMACEUTICAL INDUSTRIES LTD-2023R1-394711

PATIENT
  Age: 54 Year
  Sex: Female
  Weight: 83 kg

DRUGS (3)
  1. ANASTROZOLE [Suspect]
     Active Substance: ANASTROZOLE
     Indication: Breast cyst
     Dosage: 1 MILLIGRAM, QD
     Route: 048
     Dates: start: 202211
  2. CALCIUM [Concomitant]
     Active Substance: CALCIUM
     Indication: Bone loss
     Dosage: 1 GRAM, QD
     Route: 048
     Dates: start: 202211
  3. vitamin D 7000UI [Concomitant]
     Indication: Bone loss
     Dosage: UNK, WEEKLY
     Route: 048
     Dates: start: 202211

REACTIONS (7)
  - Neoplasm [Not Recovered/Not Resolved]
  - Alopecia [Not Recovered/Not Resolved]
  - Blood pressure increased [Recovered/Resolved]
  - Depression [Not Recovered/Not Resolved]
  - Hot flush [Not Recovered/Not Resolved]
  - Hyperhidrosis [Not Recovered/Not Resolved]
  - Weight increased [Not Recovered/Not Resolved]

NARRATIVE: CASE EVENT DATE: 20221101
